FAERS Safety Report 4526959-X (Version None)
Quarter: 2004Q4

REPORT INFORMATION
  Report Type: 
  Country: None (occurrence: None)
  Receive Date: 20041214
  Receipt Date: 20041020
  Transmission Date: 20050328
  Serious: Yes (Disabling, Other)
  Sender: FDA-Public Use
  Company Number: 2004S1003159

PATIENT
  Age: 37 Year
  Sex: Female

DRUGS (2)
  1. AMITRIPTYLINE HCL [Suspect]
     Indication: DEPRESSION
     Dosage: 25 MG QHS, ORAL
     Route: 048
     Dates: start: 19930101
  2. AMITRIPTYLINE HYDROCHLORIDE TABLETS 75 MG [Suspect]
     Indication: DEPRESSION
     Dosage: 75 MG QHS. ORAL
     Route: 048
     Dates: end: 19940101

REACTIONS (9)
  - ANAL HAEMORRHAGE [None]
  - ANGER [None]
  - CRYING [None]
  - DERMATITIS [None]
  - IRRITABILITY [None]
  - PAIN [None]
  - POLLAKIURIA [None]
  - SKIN BURNING SENSATION [None]
  - SKIN LESION [None]
